FAERS Safety Report 25660034 (Version 1)
Quarter: 2025Q3

REPORT INFORMATION
  Report Type: Spontaneous
  Country: US (occurrence: None)
  Receive Date: 20250807
  Receipt Date: 20250807
  Transmission Date: 20251021
  Serious: Yes (Hospitalization)
  Sender: FDA-CTU
  Company Number: None

PATIENT
  Age: 70 Year
  Sex: Female
  Weight: 55.8 kg

DRUGS (1)
  1. DONANEMAB [Suspect]
     Active Substance: DONANEMAB
     Indication: Dementia Alzheimer^s type
     Route: 041
     Dates: start: 20250706, end: 20250803

REACTIONS (4)
  - Flushing [None]
  - Swollen tongue [None]
  - Respiratory distress [None]
  - Infusion related reaction [None]

NARRATIVE: CASE EVENT DATE: 20250803
